FAERS Safety Report 10780064 (Version 1)
Quarter: 2015Q1

REPORT INFORMATION
  Report Type: Spontaneous
  Country: CH (occurrence: None)
  Receive Date: 20150206
  Receipt Date: 20150206
  Transmission Date: 20150721
  Serious: Yes (Life-Threatening)
  Sender: FDA-Public Use
  Company Number: 20150057

PATIENT
  Age: 45 Year
  Sex: Female

DRUGS (1)
  1. FERINJECT [Suspect]
     Active Substance: FERRIC CARBOXYMALTOSE
     Indication: IRON DEFICIENCY ANAEMIA
     Route: 042
     Dates: start: 20150114, end: 20150114

REACTIONS (8)
  - Blood pressure decreased [None]
  - Flushing [None]
  - Dyspnoea [None]
  - Face oedema [None]
  - Sensation of foreign body [None]
  - Respiratory disorder [None]
  - Presyncope [None]
  - Localised oedema [None]

NARRATIVE: CASE EVENT DATE: 20150114
